FAERS Safety Report 7834456-9 (Version None)
Quarter: 2011Q4

REPORT INFORMATION
  Report Type: 
  Country: None (occurrence: None)
  Receive Date: 20111024
  Receipt Date: 20111012
  Transmission Date: 20120403
  Serious: Yes (Hospitalization, Other)
  Sender: FDA-Public Use
  Company Number: US-ELI_LILLY_AND_COMPANY-US201110003424

PATIENT
  Sex: Male

DRUGS (23)
  1. HUMALOG [Suspect]
     Dosage: 5 U, EACH EVENING
  2. HUMALOG [Suspect]
     Dosage: 5 U, EACH EVENING
  3. CALCITRIOL [Concomitant]
     Dosage: 0.25 DF, UNK
  4. HUMALOG [Suspect]
     Indication: DIABETES MELLITUS
     Dosage: 5 U, EACH MORNING
  5. ASPIRIN [Concomitant]
     Dosage: UNK, QD
  6. VITIRON [Concomitant]
     Dosage: UNK, QD
  7. PLAVIX [Concomitant]
     Dosage: 75 MG, UNKNOWN
  8. HUMALOG [Suspect]
     Dosage: 5 U, EACH MORNING
     Dates: start: 20050101
  9. FUROSEMIDE [Concomitant]
     Dosage: 40 MG, BID
  10. MAGNESIUM [Concomitant]
     Dosage: 64 DF, UNK
  11. RANITIDINE [Concomitant]
     Dosage: UNK
  12. METOCLOPRAMIDE [Concomitant]
     Dosage: UNK
  13. HUMALOG [Suspect]
     Dosage: UNK, PRN
  14. HUMALOG [Suspect]
     Dosage: 7 U, QD
  15. HUMALOG [Suspect]
     Dosage: UNK, PRN
  16. CARVEDILOL [Concomitant]
     Dosage: 6.25 MG, BID
  17. AMLODIPINE [Concomitant]
     Dosage: UNK
  18. PROGRAF [Concomitant]
     Dosage: UNK
  19. ALLOPURINOL [Concomitant]
     Dosage: UNK
  20. HUMALOG [Suspect]
     Dosage: 7 U, QD
  21. LANTUS [Concomitant]
     Dosage: 16 U, QD
  22. CLONIDINE [Concomitant]
     Dosage: 0.1 MG, BID
  23. MYFORTIC [Concomitant]
     Dosage: UNK

REACTIONS (8)
  - RENAL TRANSPLANT [None]
  - NERVOUSNESS [None]
  - DRUG INEFFECTIVE [None]
  - FEAR [None]
  - BLOOD GLUCOSE DECREASED [None]
  - BLOOD GLUCOSE INCREASED [None]
  - CORONARY ARTERY OCCLUSION [None]
  - BLOOD CREATINE INCREASED [None]
